FAERS Safety Report 22290329 (Version 2)
Quarter: 2023Q2

REPORT INFORMATION
  Report Type: Report from Study
  Country: CN (occurrence: CN)
  Receive Date: 20230505
  Receipt Date: 20230526
  Transmission Date: 20230722
  Serious: Yes (Hospitalization)
  Sender: FDA-Public Use
  Company Number: CN-ANTENGENE-20230401629

PATIENT
  Age: 66 Year
  Sex: Male
  Weight: 59 kg

DRUGS (12)
  1. SELINEXOR [Suspect]
     Active Substance: SELINEXOR
     Indication: Plasma cell myeloma
     Dosage: 100 MG, WEEKLY
     Route: 048
     Dates: start: 20221125, end: 20221215
  2. SELINEXOR [Suspect]
     Active Substance: SELINEXOR
     Dosage: 80 MG, WEEKLY
     Route: 048
     Dates: start: 20221230, end: 20230421
  3. SELINEXOR [Suspect]
     Active Substance: SELINEXOR
     Dosage: 60 MG, WEEKLY
     Route: 048
     Dates: start: 20230505
  4. BORTEZOMIB [Suspect]
     Active Substance: BORTEZOMIB
     Indication: Plasma cell myeloma
     Dosage: 2.275 MG, WEEKLY
     Route: 058
     Dates: start: 20221125, end: 20230421
  5. DEXAMETHASONE [Suspect]
     Active Substance: DEXAMETHASONE
     Indication: Plasma cell myeloma
     Dosage: 20 MG, 2X/WEEK
     Route: 048
     Dates: start: 20221125, end: 20230421
  6. CALCIUM CARBONATE [Concomitant]
     Active Substance: CALCIUM CARBONATE
     Dosage: 1 UNK, QD
     Route: 048
     Dates: start: 202107
  7. METHYLCOBALAMIN [Concomitant]
     Active Substance: METHYLCOBALAMIN
     Dosage: 0.5 MG, TID
     Route: 048
     Dates: start: 202107
  8. CALCITRIOL [Concomitant]
     Active Substance: CALCITRIOL
     Dosage: 0.25 UG, QD
     Route: 048
     Dates: start: 202107
  9. OMEPRAZOLE [Concomitant]
     Active Substance: OMEPRAZOLE
     Dosage: ON-DEMAND
     Route: 048
     Dates: start: 20221126
  10. MA REN [ARMENIACA VULGARIS VAR. ANSU SEED;CANNABIS SATIVA FRUIT;CITRUS [Concomitant]
     Dosage: ON-DEMAND
     Route: 048
     Dates: start: 202212
  11. ELTROMBOPAG OLAMINE [Concomitant]
     Active Substance: ELTROMBOPAG OLAMINE
     Dosage: 50 MG, QD
     Route: 048
     Dates: start: 20230421
  12. Ma ren [Concomitant]
     Dosage: ON-DEMAND
     Route: 048
     Dates: start: 202212

REACTIONS (1)
  - Vomiting [Recovered/Resolved]

NARRATIVE: CASE EVENT DATE: 20230422
